FAERS Safety Report 8237327-1 (Version None)
Quarter: 2012Q1

REPORT INFORMATION
  Report Type: 
  Country: None (occurrence: None)
  Receive Date: 20120327
  Receipt Date: 20120320
  Transmission Date: 20120608
  Serious: Yes (Other)
  Sender: FDA-Public Use
  Company Number: US-PFIZER INC-2012052927

PATIENT
  Sex: Male
  Weight: 63.492 kg

DRUGS (5)
  1. METOPROLOL [Concomitant]
     Dosage: 25 MG, UNK
  2. DETROL [Suspect]
     Indication: INCONTINENCE
     Dosage: UNK
  3. DILTIAZEM [Concomitant]
     Indication: MYOCARDIAL INFARCTION
     Dosage: UNK
  4. DETROL LA [Suspect]
     Indication: HYPERTONIC BLADDER
     Dosage: 2 MG, 1X/DAY
     Route: 048
     Dates: start: 20111201
  5. LISINOPRIL [Concomitant]
     Indication: MYOCARDIAL INFARCTION
     Dosage: UNK

REACTIONS (3)
  - GENERAL PHYSICAL HEALTH DETERIORATION [None]
  - NOCTURIA [None]
  - DRUG INEFFECTIVE [None]
